FAERS Safety Report 8985839 (Version 1)
Quarter: 2012Q4

REPORT INFORMATION
  Report Type: 
  Country: US (occurrence: US)
  Receive Date: 20121226
  Receipt Date: 20121226
  Transmission Date: 20130627
  Serious: Yes (Other)
  Sender: FDA-Public Use
  Company Number: PHHY2012US113908

PATIENT
  Age: 59 Year
  Sex: Female

DRUGS (16)
  1. METFORMIN [Suspect]
     Indication: DIABETES MELLITUS MANAGEMENT
     Dosage: 500 mg, QD
  2. METFORMIN [Suspect]
     Dosage: 1000 mg, BID
  3. ANALGESICS [Concomitant]
     Route: 048
  4. LEVOTHYROXINE [Concomitant]
  5. INSULIN DETEMIR [Concomitant]
  6. INSULIN ASPART [Concomitant]
  7. ALENDRONATE [Concomitant]
  8. ASPIRIN [Concomitant]
  9. LISINOPRIL [Concomitant]
  10. SIMVASTATIN [Concomitant]
  11. CYANOCOBALAMIN [Concomitant]
  12. CITALOPRAM [Concomitant]
  13. CM PROMETHAZINE [Concomitant]
  14. HYDROCODONE W/ACETAMINOPHEN [Concomitant]
  15. VITAMIIN C [Concomitant]
  16. CALCIUM CITRATE/VITAMIN D [Concomitant]

REACTIONS (6)
  - Pancreatitis [Recovering/Resolving]
  - Abdominal pain [Recovering/Resolving]
  - Abdominal pain upper [Recovering/Resolving]
  - Nausea [Recovered/Resolved]
  - Abdominal tenderness [Unknown]
  - Blood glucose increased [Unknown]
